FAERS Safety Report 5222040-5 (Version None)
Quarter: 2007Q1

REPORT INFORMATION
  Report Type: 
  Country: None (occurrence: None)
  Receive Date: 20070129
  Receipt Date: 20060418
  Transmission Date: 20070707
  Serious: No
  Sender: FDA-Public Use
  Company Number: US-GLAXOSMITHKLINE-A0602165A

PATIENT
  Age: 78 Year
  Sex: Male

DRUGS (7)
  1. WELLBUTRIN [Suspect]
     Indication: DEPRESSION
     Dosage: 75MG TWICE PER DAY
     Route: 048
  2. ATENOLOL [Concomitant]
  3. ASPIRIN [Concomitant]
  4. LOVASTATIN [Concomitant]
  5. TYLENOL [Concomitant]
  6. ATIVAN [Concomitant]
  7. AMITRIPTYLINE HCL [Concomitant]

REACTIONS (3)
  - DEPRESSION [None]
  - NERVOUSNESS [None]
  - TREMOR [None]
